FAERS Safety Report 9361730 (Version 1)
Quarter: 2013Q2

REPORT INFORMATION
  Report Type: Spontaneous
  Country: US (occurrence: US)
  Receive Date: 20130621
  Receipt Date: 20130621
  Transmission Date: 20140414
  Serious: Yes (Hospitalization, Other)
  Sender: FDA-Public Use
  Company Number: US-TEVA-413655USA

PATIENT
  Age: 32 Year
  Sex: Female

DRUGS (4)
  1. GABAPENTIN [Suspect]
     Indication: DRUG ABUSE
     Route: 065
  2. TRAMADOL [Suspect]
     Indication: DRUG ABUSE
     Route: 065
  3. SERTRALINE [Suspect]
     Route: 065
  4. METHADONE [Suspect]
     Indication: DRUG ABUSE
     Route: 065

REACTIONS (7)
  - Serotonin syndrome [Unknown]
  - Drug abuse [Unknown]
  - Drug abuse [Unknown]
  - Convulsion [Unknown]
  - Blood creatine phosphokinase increased [Unknown]
  - Myoclonus [Unknown]
  - Tachycardia [Unknown]
